FAERS Safety Report 7062431-3 (Version None)
Quarter: 2010Q4

REPORT INFORMATION
  Report Type: 
  Country: None (occurrence: None)
  Receive Date: 20101026
  Receipt Date: 20091008
  Transmission Date: 20110411
  Serious: No
  Sender: FDA-Public Use
  Company Number: US-PFIZER INC-2009282624

PATIENT
  Sex: Male

DRUGS (4)
  1. LIPITOR [Suspect]
     Dosage: 40 MG, 1X/DAY
  2. FISH OIL [Concomitant]
  3. VITAMIN D [Concomitant]
  4. CRESTOR [Concomitant]

REACTIONS (1)
  - MYALGIA [None]
